FAERS Safety Report 18589594 (Version 1)
Quarter: 2020Q4

REPORT INFORMATION
  Report Type: Spontaneous
  Country: FI (occurrence: FI)
  Receive Date: 20201208
  Receipt Date: 20201208
  Transmission Date: 20210114
  Serious: Yes (Other)
  Sender: FDA-Public Use
  Company Number: FI-TEVA-2020-FI-1855313

PATIENT
  Age: 38 Year
  Sex: Male

DRUGS (1)
  1. ROSUVASTATIN ACTAVIS [Suspect]
     Active Substance: ROSUVASTATIN
     Indication: DYSLIPIDAEMIA
     Dosage: 20 MILLIGRAM DAILY; 20,MG,DAILY
     Route: 048
     Dates: start: 20201021, end: 20201022

REACTIONS (2)
  - Haematuria [Unknown]
  - Eye haematoma [Unknown]

NARRATIVE: CASE EVENT DATE: 20201022
